FAERS Safety Report 9398156 (Version 1)
Quarter: 2013Q3

REPORT INFORMATION
  Report Type: Spontaneous
  Country: US (occurrence: None)
  Receive Date: 20130709
  Receipt Date: 20130709
  Transmission Date: 20140515
  Serious: Yes (Hospitalization)
  Sender: FDA-Public Use
  Company Number: AUR-APL-2013-05583

PATIENT
  Age: 54 Year
  Sex: Male
  Weight: 90 kg

DRUGS (1)
  1. NAPROXEN [Suspect]
     Indication: ARTHRALGIA
     Dosage: 1000MG (500MG, 2 IN 1 D, ORAL
     Route: 048

REACTIONS (3)
  - Tachypnoea [None]
  - Hypoxia [None]
  - Eosinophilia [None]
